FAERS Safety Report 25515171 (Version 3)
Quarter: 2025Q3

REPORT INFORMATION
  Report Type: Spontaneous
  Country: US (occurrence: US)
  Receive Date: 20250703
  Receipt Date: 20250813
  Transmission Date: 20251021
  Serious: No
  Sender: ALEXION PHARMACEUTICALS
  Company Number: US-AstraZeneca-CH-00901557AP

PATIENT
  Sex: Female

DRUGS (1)
  1. AIRSUPRA [Suspect]
     Active Substance: ALBUTEROL SULFATE\BUDESONIDE

REACTIONS (5)
  - Product dose omission issue [Unknown]
  - Wrong technique in device usage process [Unknown]
  - Wrong technique in product usage process [Unknown]
  - Device delivery system issue [Unknown]
  - Device defective [Unknown]
